FAERS Safety Report 5054757-X (Version None)
Quarter: 2006Q3

REPORT INFORMATION
  Report Type: 
  Country: None (occurrence: None)
  Receive Date: 20060717
  Receipt Date: 20060630
  Transmission Date: 20061208
  Serious: Yes (Death)
  Sender: FDA-Public Use
  Company Number: 2781

PATIENT
  Sex: 0

DRUGS (1)
  1. AMNESTEEM [Suspect]
     Indication: MYCOSIS FUNGOIDES

REACTIONS (1)
  - DEATH [None]
